FAERS Safety Report 22084382 (Version 1)
Quarter: 2023Q1

REPORT INFORMATION
  Report Type: Spontaneous
  Country: US (occurrence: US)
  Receive Date: 20230310
  Receipt Date: 20230310
  Transmission Date: 20230418
  Serious: No
  Sender: FDA-Public Use
  Company Number: US-HORIZON THERAPEUTICS-HZN-2022-005861

PATIENT

DRUGS (3)
  1. PENNSAID [Suspect]
     Active Substance: DICLOFENAC SODIUM
     Indication: Rheumatoid arthritis
     Dosage: UNKNOWN
     Route: 061
     Dates: start: 2022
  2. PENNSAID [Suspect]
     Active Substance: DICLOFENAC SODIUM
     Indication: Systemic lupus erythematosus
  3. PENNSAID [Suspect]
     Active Substance: DICLOFENAC SODIUM
     Indication: Spinal pain

REACTIONS (2)
  - Wrong technique in device usage process [Unknown]
  - Off label use [Unknown]

NARRATIVE: CASE EVENT DATE: 20220101
